FAERS Safety Report 7622241-2 (Version None)
Quarter: 2011Q3

REPORT INFORMATION
  Report Type: 
  Country: None (occurrence: None)
  Receive Date: 20110720
  Receipt Date: 20110610
  Transmission Date: 20111222
  Serious: Yes (Hospitalization, Other)
  Sender: FDA-Public Use
  Company Number: US-BAYER-2011-024471

PATIENT
  Age: 41 Year
  Sex: Female
  Weight: 81.633 kg

DRUGS (26)
  1. DEURATIO [Concomitant]
     Indication: NEUROPATHY PERIPHERAL
  2. YAZ [Suspect]
  3. YASMIN [Suspect]
     Indication: ORAL CONTRACEPTION
  4. DROSPIRENONE AND ETHINYL ESTRADIOL [Suspect]
     Indication: PREMENSTRUAL SYNDROME
  5. MAXZIDE [Concomitant]
     Indication: HYPERTENSION
  6. SEROQUEL [Concomitant]
  7. NEXIUM [Concomitant]
  8. YAZ [Suspect]
     Indication: ACNE
     Dosage: UNK
     Route: 048
     Dates: start: 20040101, end: 20090101
  9. YAZ [Suspect]
     Indication: ORAL CONTRACEPTION
  10. YASMIN [Suspect]
     Indication: PREMENSTRUAL SYNDROME
  11. DROSPIRENONE AND ETHINYL ESTRADIOL [Suspect]
  12. TRIAMTERENE AND HYDROCHLOROTHIAZIDE [Concomitant]
  13. AMITRIPTYLINE HCL [Concomitant]
  14. SINGULAIR [Concomitant]
  15. YASMIN [Suspect]
  16. DROSPIRENONE AND ETHINYL ESTRADIOL [Suspect]
     Indication: ACNE
     Dosage: UNK
     Route: 048
     Dates: start: 20040101, end: 20090101
  17. ELAVIL [Concomitant]
     Indication: FIBROMYALGIA
  18. TOPROL-XL [Concomitant]
     Indication: HYPERTENSION
  19. ULTRACET [Concomitant]
     Indication: PAIN
  20. THYROID TAB [Concomitant]
  21. IBUPROFEN [Concomitant]
  22. YAZ [Suspect]
     Indication: PREMENSTRUAL SYNDROME
  23. YASMIN [Suspect]
     Indication: ACNE
     Dosage: UNK
     Route: 048
     Dates: start: 20040101, end: 20090101
  24. CYMBALTA [Concomitant]
     Indication: FIBROMYALGIA
  25. TRAZODONE [Concomitant]
  26. CLONAZEPAM [Concomitant]

REACTIONS (5)
  - DEEP VEIN THROMBOSIS [None]
  - BILIARY DYSKINESIA [None]
  - INJURY [None]
  - PAIN [None]
  - CHOLECYSTECTOMY [None]
